FAERS Safety Report 4869523-5 (Version None)
Quarter: 2005Q4

REPORT INFORMATION
  Report Type: 
  Country: None (occurrence: None)
  Receive Date: 20051230
  Receipt Date: 20051208
  Transmission Date: 20060501
  Serious: Yes (Hospitalization)
  Sender: FDA-Public Use
  Company Number: US-MERCK-0512USA01535

PATIENT
  Age: 69 Year
  Sex: Female
  Weight: 55 kg

DRUGS (3)
  1. VIOXX [Suspect]
     Indication: BACK PAIN
     Route: 048
     Dates: start: 20021101, end: 20040212
  2. VIOXX [Suspect]
     Indication: NECK PAIN
     Route: 048
     Dates: start: 20021101, end: 20040212
  3. NEXIUM [Concomitant]
     Route: 065

REACTIONS (3)
  - CARDIAC DISORDER [None]
  - ISCHAEMIC STROKE [None]
  - ULCER HAEMORRHAGE [None]
